FAERS Safety Report 6913464-6 (Version None)
Quarter: 2010Q3

REPORT INFORMATION
  Report Type: 
  Country: None (occurrence: None)
  Receive Date: 20100809
  Receipt Date: 20100728
  Transmission Date: 20110219
  Serious: Yes (Hospitalization)
  Sender: FDA-Public Use
  Company Number: SE-SANOFI-AVENTIS-2010SA044332

PATIENT
  Age: 62 Year
  Sex: Male

DRUGS (6)
  1. OXALIPLATIN [Suspect]
     Indication: COLON CANCER
     Route: 042
     Dates: start: 20090416, end: 20090416
  2. OXALIPLATIN [Suspect]
     Route: 042
  3. FLUOROURACIL [Concomitant]
     Indication: COLON CANCER
     Dates: end: 20100201
  4. BETAPRED [Concomitant]
  5. ONDANSETRON [Concomitant]
  6. PRIMPERAN TAB [Concomitant]

REACTIONS (2)
  - NEUROPATHY PERIPHERAL [None]
  - PAPILLOEDEMA [None]
